FAERS Safety Report 10308204 (Version 3)
Quarter: 2014Q3

REPORT INFORMATION
  Report Type: Spontaneous
  Country: US (occurrence: None)
  Receive Date: 20140625
  Receipt Date: 20140721
  Transmission Date: 20150326
  Serious: No
  Sender: FDA-Public Use
  Company Number: US-145553

PATIENT
  Age: 66 Year
  Sex: Male

DRUGS (1)
  1. BOTULISM ANTITOXIN [Suspect]
     Active Substance: BOTULISM ANTITOXIN
     Indication: BOTULISM
     Dates: start: 20140616, end: 20140616

REACTIONS (12)
  - Pyrexia [None]
  - Respiratory distress [None]
  - Vision blurred [None]
  - Oxygen saturation decreased [None]
  - Diplopia [None]
  - Dysphagia [None]
  - Asthenia [None]
  - Dyspnoea [None]
  - Hypoxia [None]
  - Dysarthria [None]
  - Respiratory paralysis [None]
  - Eyelid ptosis [None]

NARRATIVE: CASE EVENT DATE: 20140617
